FAERS Safety Report 7339069-3 (Version None)
Quarter: 2011Q1

REPORT INFORMATION
  Report Type: 
  Country: None (occurrence: None)
  Receive Date: 20110308
  Receipt Date: 20110228
  Transmission Date: 20110831
  Serious: Yes (Hospitalization)
  Sender: FDA-Public Use
  Company Number: US-GILEAD-2011-0036574

PATIENT
  Sex: Male

DRUGS (15)
  1. SPIRIVA [Concomitant]
  2. CLONAZEPAM [Concomitant]
  3. SYMBICORT [Concomitant]
  4. CALCIUM CARBONATE [Concomitant]
  5. NITROGLYCERIN [Concomitant]
  6. PREDNISONE [Concomitant]
  7. ENALAPRIL MALEATE [Concomitant]
  8. HYDROCHLOROTHIAZIDE [Concomitant]
  9. AMBIEN [Concomitant]
  10. VITAMIN D [Concomitant]
  11. LETAIRIS [Suspect]
     Indication: PULMONARY HYPERTENSION
     Route: 048
     Dates: start: 20101118
  12. PROAIR HFA [Concomitant]
  13. VICODIN [Concomitant]
  14. DEMECLOCYCLINE HCL [Concomitant]
  15. TYLENOL [Concomitant]

REACTIONS (2)
  - CHRONIC OBSTRUCTIVE PULMONARY DISEASE [None]
  - PNEUMONIA [None]
